FAERS Safety Report 5859034-2 (Version None)
Quarter: 2008Q3

REPORT INFORMATION
  Report Type: 
  Country: None (occurrence: None)
  Receive Date: 20080825
  Receipt Date: 20080811
  Transmission Date: 20090109
  Serious: Yes (Hospitalization)
  Sender: FDA-Public Use
  Company Number: 2008BI021452

PATIENT
  Age: 62 Year
  Sex: Male

DRUGS (4)
  1. ZEVALIN [Suspect]
     Indication: B-CELL LYMPHOMA
     Dosage: 1200 MBQ; 1X; IV
     Route: 042
     Dates: start: 20080514, end: 20080514
  2. MABTHERA [Concomitant]
  3. ZELITREX [Concomitant]
  4. OMEPRAZOLE [Concomitant]

REACTIONS (1)
  - AGRANULOCYTOSIS [None]
